FAERS Safety Report 4517527-4 (Version None)
Quarter: 2004Q4

REPORT INFORMATION
  Report Type: 
  Country: None (occurrence: None)
  Receive Date: 20041027
  Receipt Date: 20040820
  Transmission Date: 20050328
  Serious: No
  Sender: FDA-Public Use
  Company Number: US087944

PATIENT
  Age: 61 Year
  Sex: Female

DRUGS (12)
  1. SENSIPAR [Suspect]
     Indication: HYPERPARATHYROIDISM PRIMARY
     Dosage: 30 MG, 1 IN 1 DAYS, PO
     Route: 048
     Dates: start: 20040810, end: 20040818
  2. EZETIMIBE [Concomitant]
  3. LEVOTHRYROXINE SODIUM [Concomitant]
  4. GABAPENTIN [Concomitant]
  5. ESTRADIOL [Concomitant]
  6. PROGESTERONE [Concomitant]
  7. CHLORPHENIRAMINE MALEATE [Concomitant]
  8. FLUTICASONE PROPIONATE [Concomitant]
  9. FERROUS SULFATE TAB [Concomitant]
  10. PIRBUTEROL ACETATE [Concomitant]
  11. CYANOCOBALAMIN [Concomitant]
  12. CALCIUM GLUCONATE [Concomitant]

REACTIONS (1)
  - RASH ERYTHEMATOUS [None]
